APPROVED DRUG PRODUCT: FAMOTIDINE
Active Ingredient: FAMOTIDINE
Strength: 20MG
Dosage Form/Route: TABLET;ORAL
Application: A090283 | Product #002
Applicant: SUN PHARMACEUTICAL INDUSTRIES LTD
Approved: Nov 17, 2009 | RLD: No | RS: No | Type: DISCN